FAERS Safety Report 10231311 (Version 1)
Quarter: 2014Q2

REPORT INFORMATION
  Report Type: Spontaneous
  Country: JP (occurrence: JP)
  Receive Date: 20140611
  Receipt Date: 20140611
  Transmission Date: 20141212
  Serious: Yes (Hospitalization)
  Sender: FDA-Public Use
  Company Number: JP-WATSON-2014-12742

PATIENT
  Age: 67 Year
  Sex: Female
  Weight: 35 kg

DRUGS (2)
  1. CLARITHROMYCIN (UNKNOWN) [Suspect]
     Indication: UPPER RESPIRATORY TRACT INFECTION
     Dosage: 200 MG, BID
     Route: 065
  2. MITIGLINIDE [Concomitant]
     Indication: DIABETES MELLITUS
     Dosage: UNKNOWN
     Route: 065

REACTIONS (2)
  - Enterocolitis haemorrhagic [Recovered/Resolved]
  - Klebsiella infection [Recovered/Resolved]
